FAERS Safety Report 17679635 (Version 17)
Quarter: 2023Q2

REPORT INFORMATION
  Report Type: Report from Study
  Country: US (occurrence: US)
  Receive Date: 20200417
  Receipt Date: 20230403
  Transmission Date: 20230722
  Serious: Yes (Other)
  Sender: FDA-Public Use
  Company Number: NVSC2020US101240

PATIENT
  Sex: Female
  Weight: 58.05 kg

DRUGS (10)
  1. TREPROSTINIL [Suspect]
     Active Substance: TREPROSTINIL
     Indication: Pulmonary arterial hypertension
     Dosage: 45 NG/KG/MIN, CONT
     Route: 042
     Dates: start: 20190418
  2. TREPROSTINIL [Suspect]
     Active Substance: TREPROSTINIL
     Dosage: 45 NG/KG/MIN, CONT
     Route: 042
  3. TREPROSTINIL [Suspect]
     Active Substance: TREPROSTINIL
     Dosage: 40 NG/KG/MIN, CONT
     Route: 042
  4. TREPROSTINIL [Suspect]
     Active Substance: TREPROSTINIL
     Dosage: 40 NG/KG/MIN, CONT
     Route: 042
  5. TREPROSTINIL [Suspect]
     Active Substance: TREPROSTINIL
     Dosage: 40 NG/KG/MIN, CONT
     Route: 042
  6. TREPROSTINIL [Suspect]
     Active Substance: TREPROSTINIL
     Dosage: 40 NG/KG/MIN, CONT
     Route: 042
  7. TREPROSTINIL [Suspect]
     Active Substance: TREPROSTINIL
     Dosage: 40 NG/KG/MIN, CONT
     Route: 042
  8. ASPIRIN [Suspect]
     Active Substance: ASPIRIN
     Indication: Product used for unknown indication
     Dosage: UNK, (LOW DOSE)
     Route: 065
  9. AMBRISENTAN [Suspect]
     Active Substance: AMBRISENTAN
     Indication: Product used for unknown indication
     Dosage: UNK
     Route: 065
  10. TADALAFIL [Suspect]
     Active Substance: TADALAFIL
     Indication: Product used for unknown indication
     Dosage: UNK
     Route: 065

REACTIONS (20)
  - Malignant melanoma [Unknown]
  - Scleroderma [Unknown]
  - Haemorrhage [Unknown]
  - Kidney infection [Unknown]
  - Device dislocation [Unknown]
  - Splenomegaly [Unknown]
  - Hepatomegaly [Unknown]
  - Incontinence [Unknown]
  - Nervous system disorder [Unknown]
  - Exercise tolerance decreased [Unknown]
  - Oedema peripheral [Unknown]
  - Abdominal distension [Unknown]
  - Cardiac disorder [Unknown]
  - Skin haemorrhage [Unknown]
  - Nasopharyngitis [Recovering/Resolving]
  - Infection [Unknown]
  - Stoma site discharge [Unknown]
  - Dyspnoea [Not Recovered/Not Resolved]
  - Infusion site haemorrhage [Unknown]
  - Infusion related reaction [Unknown]
